FAERS Safety Report 5784431-3 (Version None)
Quarter: 2008Q2

REPORT INFORMATION
  Report Type: 
  Country: None (occurrence: None)
  Receive Date: 20080605
  Receipt Date: 20080407
  Transmission Date: 20081010
  Serious: No
  Sender: FDA-Public Use
  Company Number: A0721273A

PATIENT
  Age: 59 Year
  Sex: Female

DRUGS (4)
  1. ALLI [Suspect]
     Dates: start: 20080401
  2. ASCORBIC ACID [Concomitant]
  3. VITAMIN D [Concomitant]
  4. SUPPLEMENT [Concomitant]

REACTIONS (1)
  - CHANGE OF BOWEL HABIT [None]
